FAERS Safety Report 8962365 (Version 1)
Quarter: 2013Q1

REPORT INFORMATION
  Report Type: Spontaneous
  Country: US (occurrence: None)
  Receive Date: 20121211
  Receipt Date: 20121211
  Transmission Date: 20140127
  Serious: Yes (Congenital Anomaly)
  Sender: FDA-Public Use
  Company Number: None

PATIENT
  Age: 37 Year
  Sex: Female
  Weight: 80.5 kg

DRUGS (7)
  1. BENLYSTA [Suspect]
     Indication: SYSTEMIC LUPUS ERYTHEMATOSUS
     Dosage: Q4WKS
     Route: 042
  2. ASPIRIN [Concomitant]
  3. ENOXAPARIN [Concomitant]
  4. HYDROXYCHLOROQUINE [Concomitant]
  5. LEVOTHYROXINE [Concomitant]
  6. PRENANTAL VITAMIN [Concomitant]
  7. ZOLPIDEM [Concomitant]

REACTIONS (2)
  - Abortion spontaneous [None]
  - White blood cell count increased [None]
